FAERS Safety Report 8103309-3 (Version None)
Quarter: 2011Q4

REPORT INFORMATION
  Report Type: 
  Country: None (occurrence: None)
  Receive Date: 20111222
  Receipt Date: 20110912
  Transmission Date: 20120403
  Serious: Yes (Hospitalization)
  Sender: FDA-Public Use
  Company Number: UTC-010170

PATIENT
  Age: 70 Year
  Sex: Female
  Weight: 57.27 kg

DRUGS (1)
  1. TYVASO [Suspect]
     Indication: COR PULMONALE CHRONIC
     Dosage: 216 MCG (54 MCG,4 IN 1 D),INHALATION
     Route: 055
     Dates: start: 20101015

REACTIONS (1)
  - LIVER DISORDER [None]
